FAERS Safety Report 12540791 (Version 2)
Quarter: 2016Q3

REPORT INFORMATION
  Report Type: Spontaneous
  Country: PR (occurrence: PR)
  Receive Date: 20160708
  Receipt Date: 20160818
  Transmission Date: 20161109
  Serious: No
  Sender: FDA-Public Use
  Company Number: PR-PFIZER INC-2016308840

PATIENT
  Age: 53 Year

DRUGS (1)
  1. LYRICA [Suspect]
     Active Substance: PREGABALIN
     Indication: FIBROMYALGIA
     Dosage: 2X/DAY (1 CAPSULE OF 150 MG EACH MORNING AND 1 CAPSULE OF 300 MG EACH EVENING)
     Route: 048

REACTIONS (1)
  - Malaise [Unknown]
